FAERS Safety Report 12689079 (Version 1)
Quarter: 2016Q3

REPORT INFORMATION
  Report Type: Spontaneous
  Country: US (occurrence: None)
  Receive Date: 20160825
  Receipt Date: 20160825
  Transmission Date: 20161109
  Serious: No
  Sender: FDA-Public Use
  Company Number: None

PATIENT
  Age: 24 Year
  Sex: Male

DRUGS (1)
  1. TEMOZOLOMIDE CAP 250MG [Suspect]
     Active Substance: TEMOZOLOMIDE
     Dosage: 250 1 QD FOR 5 DAYS ORAL
     Route: 048
     Dates: start: 20160724

REACTIONS (1)
  - Fatigue [None]

NARRATIVE: CASE EVENT DATE: 20160824
